FAERS Safety Report 11918445 (Version 4)
Quarter: 2016Q2

REPORT INFORMATION
  Report Type: Spontaneous
  Country: US (occurrence: US)
  Receive Date: 20160115
  Receipt Date: 20160519
  Transmission Date: 20160815
  Serious: Yes (Other)
  Sender: FDA-Public Use
  Company Number: US-PFIZER INC-2016005436

PATIENT
  Age: 69 Year
  Sex: Female
  Weight: 61.23 kg

DRUGS (4)
  1. LATANOPROST. [Suspect]
     Active Substance: LATANOPROST
     Dosage: ONE DROP, 1X/DAY
     Dates: start: 2014
  2. LATANOPROST. [Suspect]
     Active Substance: LATANOPROST
     Indication: GLAUCOMA
     Dosage: ONE DROP, 1X/DAY
     Dates: start: 2014
  3. LATANOPROST. [Suspect]
     Active Substance: LATANOPROST
     Dosage: 2 GTT, 1X/DAY (0.005% 1 DROP EACH EYE)
     Dates: start: 201403
  4. NATURE-THROID [Concomitant]
     Active Substance: THYROID, PORCINE
     Indication: THYROID DISORDER
     Dosage: 2.5 GRAIN (162.5 MG), 1X/DAY
     Dates: start: 20150314

REACTIONS (3)
  - Eyelid ptosis [Unknown]
  - Lid sulcus deepened [Not Recovered/Not Resolved]
  - Eyelid oedema [Unknown]
